FAERS Safety Report 8035523-X (Version None)
Quarter: 2012Q1

REPORT INFORMATION
  Report Type: 
  Country: None (occurrence: None)
  Receive Date: 20120110
  Receipt Date: 20120110
  Transmission Date: 20120608
  Serious: Yes (Other)
  Sender: FDA-Public Use
  Company Number: None

PATIENT
  Sex: Female
  Weight: 63.05 kg

DRUGS (1)
  1. OLANZAPINE [Suspect]
     Dosage: 1/2 TAB DAILY PO
     Route: 048
     Dates: start: 20111128, end: 20111204

REACTIONS (2)
  - PRODUCT SUBSTITUTION ISSUE [None]
  - ADVERSE DRUG REACTION [None]
